FAERS Safety Report 6150697-3 (Version None)
Quarter: 2009Q2

REPORT INFORMATION
  Report Type: 
  Country: None (occurrence: None)
  Receive Date: 20090409
  Receipt Date: 20090401
  Transmission Date: 20091009
  Serious: Yes (Disabling, Other)
  Sender: FDA-Public Use
  Company Number: PHEH2009US03323

PATIENT
  Sex: Male

DRUGS (2)
  1. TRILEPTAL [Suspect]
     Indication: TOURETTE'S DISORDER
  2. LEXAPRO [Suspect]
     Indication: TOURETTE'S DISORDER

REACTIONS (7)
  - DISORIENTATION [None]
  - HEADACHE [None]
  - HYPERACUSIS [None]
  - HYPERSENSITIVITY [None]
  - HYPOTHALAMO-PITUITARY DISORDER [None]
  - MUSCLE SPASMS [None]
  - SENSORY LOSS [None]
